FAERS Safety Report 23084920 (Version 3)
Quarter: 2023Q4

REPORT INFORMATION
  Report Type: Spontaneous
  Country: CA (occurrence: CA)
  Receive Date: 20231019
  Receipt Date: 20231109
  Transmission Date: 20240110
  Serious: Yes (Other)
  Sender: FDA-Public Use
  Company Number: CA-AMERICAN REGENT INC-2023002421

PATIENT
  Age: 39 Year
  Sex: Female

DRUGS (1)
  1. VENOFER [Suspect]
     Active Substance: IRON SUCROSE
     Indication: Serum ferritin decreased
     Dosage: 300 MILLIGRAM (IN 250CC NS), SINGLE
     Dates: start: 20230624, end: 20230624

REACTIONS (4)
  - Urticaria [Unknown]
  - Chest discomfort [Unknown]
  - Product use in unapproved indication [Unknown]
  - Incorrect product administration duration [Unknown]

NARRATIVE: CASE EVENT DATE: 20230624
